FAERS Safety Report 6424594-X (Version None)
Quarter: 2009Q4

REPORT INFORMATION
  Report Type: 
  Country: None (occurrence: None)
  Receive Date: 20091103
  Receipt Date: 20091020
  Transmission Date: 20100525
  Serious: Yes (Hospitalization)
  Sender: FDA-Public Use
  Company Number: PHHY2009AU45882

PATIENT
  Sex: Male

DRUGS (1)
  1. CLOZARIL [Suspect]
     Dosage: 800 MG, UNK
     Dates: start: 19941201

REACTIONS (3)
  - CONVULSION [None]
  - GASTROINTESTINAL NEOPLASM [None]
  - INTESTINAL OBSTRUCTION [None]
